FAERS Safety Report 4760207-0 (Version None)
Quarter: 2005Q3

REPORT INFORMATION
  Report Type: 
  Country: None (occurrence: None)
  Receive Date: 20050902
  Receipt Date: 20050825
  Transmission Date: 20060218
  Serious: Yes (Death)
  Sender: FDA-Public Use
  Company Number: SE-JNJFOC-20050805829

PATIENT
  Sex: Male

DRUGS (11)
  1. DURAGESIC-100 [Suspect]
     Route: 062
  2. DURAGESIC-100 [Suspect]
     Route: 062
  3. DURAGESIC-100 [Suspect]
     Indication: PAIN
     Route: 062
  4. MORFIN [Concomitant]
     Route: 065
  5. OXASCAND [Concomitant]
     Route: 065
  6. PRIMPERAN INJ [Concomitant]
     Route: 065
  7. STILNOCT [Concomitant]
     Route: 065
  8. VOLTAREN [Concomitant]
     Route: 065
  9. XYLOCAINE [Concomitant]
     Route: 065
  10. DIFLUCAN [Concomitant]
     Route: 065
  11. LAKTULOS [Concomitant]
     Route: 048

REACTIONS (2)
  - DRUG TOXICITY [None]
  - RESPIRATORY DEPRESSION [None]
